FAERS Safety Report 8756393 (Version 1)
Quarter: 2012Q4

REPORT INFORMATION
  Report Type: 
  Country: JP (occurrence: JP)
  Receive Date: 20120828
  Receipt Date: 20120828
  Transmission Date: 20130627
  Serious: Yes (Other)
  Sender: FDA-Public Use
  Company Number: JP-ACCORD-014527

PATIENT
  Age: 75 Year
  Sex: Female

DRUGS (3)
  1. ETOPOSIDE [Suspect]
     Indication: OSTEOSARCOMA
     Dosage: Discontinued  one month after third course
  2. CISPLATIN [Suspect]
     Indication: OSTEOSARCOMA
     Dosage: Discontinued one month after third course
  3. IFOSFAMIDE [Suspect]
     Indication: OSTEOSARCOMA
     Dosage: Discontinued one month after third course

REACTIONS (3)
  - Pancytopenia [Unknown]
  - Malaise [Unknown]
  - Off label use [Unknown]
